FAERS Safety Report 9943027 (Version 1)
Quarter: 2014Q1

REPORT INFORMATION
  Report Type: Spontaneous
  Country: ES (occurrence: ES)
  Receive Date: 20140303
  Receipt Date: 20140303
  Transmission Date: 20141002
  Serious: Yes (Other)
  Sender: FDA-Public Use
  Company Number: ES-TEVA-464736ISR

PATIENT
  Age: 33 Year
  Sex: Female

DRUGS (1)
  1. COPAXONE [Suspect]
     Indication: MULTIPLE SCLEROSIS
     Route: 058
     Dates: start: 200511, end: 201303

REACTIONS (3)
  - Lipodystrophy acquired [Unknown]
  - Drug ineffective [Unknown]
  - General physical health deterioration [Unknown]
